FAERS Safety Report 7253090-5 (Version None)
Quarter: 2011Q1

REPORT INFORMATION
  Report Type: 
  Country: None (occurrence: None)
  Receive Date: 20110129
  Receipt Date: 20100125
  Transmission Date: 20110831
  Serious: No
  Sender: FDA-Public Use
  Company Number: US-ABBOTT-10P-163-0622509-00

PATIENT
  Sex: Female
  Weight: 70.37 kg

DRUGS (6)
  1. SORIATANE [Concomitant]
     Indication: PITYRIASIS RUBRA PILARIS
  2. CLONAZEPAM [Concomitant]
     Indication: INSOMNIA
  3. OXYBUTYNIN [Concomitant]
     Indication: HYPERTONIC BLADDER
  4. HUMIRA [Suspect]
     Indication: PITYRIASIS RUBRA PILARIS
     Dosage: ONCE
     Dates: start: 20091015, end: 20091015
  5. CITALOPRAM [Concomitant]
     Indication: ANXIETY
  6. HUMIRA [Suspect]
     Dates: end: 20100125

REACTIONS (1)
  - BRONCHITIS [None]
